FAERS Safety Report 5816219-9 (Version None)
Quarter: 2008Q3

REPORT INFORMATION
  Report Type: 
  Country: None (occurrence: None)
  Receive Date: 20080721
  Receipt Date: 20080718
  Transmission Date: 20090109
  Serious: Yes (Hospitalization)
  Sender: FDA-Public Use
  Company Number: B0529824A

PATIENT
  Age: 83 Year
  Sex: Male

DRUGS (10)
  1. CLAMOXYL IV [Suspect]
     Indication: DRUG USE FOR UNKNOWN INDICATION
     Route: 042
     Dates: end: 20080417
  2. DEROXAT [Suspect]
     Indication: DEPRESSION
     Route: 048
     Dates: end: 20080408
  3. RIFADIN [Suspect]
     Indication: DRUG USE FOR UNKNOWN INDICATION
     Route: 042
  4. CLINOMEL [Suspect]
     Indication: DRUG USE FOR UNKNOWN INDICATION
     Route: 042
  5. NEXIUM [Suspect]
     Indication: DRUG USE FOR UNKNOWN INDICATION
     Dosage: 40MG PER DAY
     Route: 048
  6. CORDARONE [Suspect]
     Indication: ARRHYTHMIA
     Route: 048
  7. LEVOTHYROX [Suspect]
     Indication: HYPOTHYROIDISM
     Route: 048
  8. LEXOMIL [Suspect]
     Indication: ANXIETY
     Dosage: .5TAB PER DAY
     Route: 048
     Dates: end: 20080415
  9. LOVENOX [Suspect]
     Indication: DRUG USE FOR UNKNOWN INDICATION
     Route: 058
  10. VANCOMYCIN HCL [Concomitant]
     Indication: ANTIBIOTIC THERAPY
     Route: 065

REACTIONS (3)
  - C-REACTIVE PROTEIN INCREASED [None]
  - LEUKOPENIA [None]
  - RASH GENERALISED [None]
